FAERS Safety Report 9936671 (Version 1)
Quarter: 2014Q1

REPORT INFORMATION
  Report Type: Spontaneous
  Country: US (occurrence: US)
  Receive Date: 20140228
  Receipt Date: 20140228
  Transmission Date: 20141002
  Serious: No
  Sender: FDA-Public Use
  Company Number: US-SANOFI-AVENTIS-2013SA058487

PATIENT
  Age: 52 Year
  Sex: Male
  Weight: 88.45 kg

DRUGS (3)
  1. DIABETA [Suspect]
     Indication: DIABETES MELLITUS
     Route: 048
  2. METFORMIN [Suspect]
     Indication: BLOOD PRESSURE
  3. ENALAPRIL [Suspect]
     Indication: BLOOD PRESSURE

REACTIONS (2)
  - Nephrolithiasis [Not Recovered/Not Resolved]
  - Headache [Recovered/Resolved]
